FAERS Safety Report 22878949 (Version 5)
Quarter: 2023Q4

REPORT INFORMATION
  Report Type: Report from Study
  Country: US (occurrence: US)
  Receive Date: 20230829
  Receipt Date: 20231226
  Transmission Date: 20240110
  Serious: No
  Sender: FDA-Public Use
  Company Number: US-002147023-NVSC2023US186662

PATIENT
  Age: 70 Year
  Sex: Female

DRUGS (1)
  1. KESIMPTA [Suspect]
     Active Substance: OFATUMUMAB
     Indication: Multiple sclerosis
     Dosage: 0.4 ML, OTHER, STARTER DOSE/ LOADING DOSE
     Route: 058
     Dates: start: 20230825

REACTIONS (4)
  - Malaise [Unknown]
  - Brain fog [Unknown]
  - Fatigue [Unknown]
  - Rib fracture [Unknown]

NARRATIVE: CASE EVENT DATE: 20230825
